FAERS Safety Report 7804361-2 (Version None)
Quarter: 2011Q4

REPORT INFORMATION
  Report Type: 
  Country: None (occurrence: None)
  Receive Date: 20111010
  Receipt Date: 20110929
  Transmission Date: 20120403
  Serious: Yes (Other)
  Sender: FDA-Public Use
  Company Number: US-BAYER-201037446NA

PATIENT
  Age: 41 Year
  Sex: Female
  Weight: 87.982 kg

DRUGS (11)
  1. BENICAR [Concomitant]
     Indication: HYPERTENSION
     Dosage: 20 MG, UNK
     Route: 048
     Dates: start: 20080101
  2. SPRINTEC [Concomitant]
     Dosage: UNK
     Dates: start: 20081001, end: 20110101
  3. METFORMIN HYDROCHLORIDE [Concomitant]
     Indication: DIABETES MELLITUS
     Dosage: UNK
     Route: 048
     Dates: start: 20040101, end: 20110101
  4. LORCET-HD [Concomitant]
     Indication: PAIN
     Dosage: 500 MG, UNK
     Route: 048
     Dates: start: 20080101
  5. HYDROXYZINE [Concomitant]
     Indication: PRURITUS
     Dosage: UNK
     Route: 048
     Dates: start: 20070101, end: 20110101
  6. YAZ [Suspect]
     Indication: PREMENSTRUAL SYNDROME
  7. YAZ [Suspect]
     Indication: MENSTRUAL CYCLE MANAGEMENT
  8. YAZ [Suspect]
     Indication: ACNE
     Dosage: UNK
     Route: 048
     Dates: start: 20070508, end: 20080901
  9. GEMFIBROZIL [Concomitant]
     Indication: BLOOD CHOLESTEROL ABNORMAL
     Dosage: 600 MG, UNK
     Route: 048
     Dates: start: 20080101
  10. VYTORIN [Concomitant]
     Indication: BLOOD CHOLESTEROL ABNORMAL
  11. LIPOFENE [Concomitant]
     Dosage: UNK
     Dates: start: 20080101

REACTIONS (6)
  - DEPRESSION [None]
  - ABDOMINAL PAIN [None]
  - CHOLECYSTITIS CHRONIC [None]
  - AMNESIA [None]
  - CHOLECYSTECTOMY [None]
  - CHOLELITHIASIS [None]
